FAERS Safety Report 25700737 (Version 2)
Quarter: 2025Q4

REPORT INFORMATION
  Report Type: Spontaneous
  Country: US (occurrence: US)
  Receive Date: 20250819
  Receipt Date: 20251203
  Transmission Date: 20260117
  Serious: No
  Sender: SANOFI AVENTIS
  Company Number: US-SA-2025SA240821

PATIENT
  Age: 61 Year
  Sex: Male

DRUGS (3)
  1. DUPIXENT [Suspect]
     Active Substance: DUPILUMAB
     Indication: Chronic obstructive pulmonary disease
     Dosage: 600 MG, 1X
     Route: 058
     Dates: start: 20250806, end: 20250806
  2. DUPIXENT [Suspect]
     Active Substance: DUPILUMAB
     Indication: Emphysema
     Dosage: 300 MG, QOW
     Route: 058
     Dates: start: 2025
  3. LASIX [Concomitant]
     Active Substance: FUROSEMIDE

REACTIONS (6)
  - Dyspnoea [Recovering/Resolving]
  - Cough [Unknown]
  - Malaise [Unknown]
  - Injection site bruising [Recovered/Resolved]
  - Product dose omission in error [Unknown]
  - Off label use [Unknown]

NARRATIVE: CASE EVENT DATE: 20250101
